FAERS Safety Report 17110220 (Version 1)
Quarter: 2019Q4

REPORT INFORMATION
  Report Type: Spontaneous
  Country: US (occurrence: US)
  Receive Date: 20191108
  Receipt Date: 20191108
  Transmission Date: 20200122
  Serious: Yes (Hospitalization)
  Sender: FDA-Public Use
  Company Number: None

PATIENT
  Sex: Female

DRUGS (9)
  1. CARB/LEVO [Concomitant]
     Active Substance: CARBIDOPA\LEVODOPA
  2. FLUTICASONE. [Concomitant]
     Active Substance: FLUTICASONE
  3. SILDENAFIL. [Concomitant]
     Active Substance: SILDENAFIL
  4. AMBRISENTAN 5MG [Suspect]
     Active Substance: AMBRISENTAN
     Indication: PULMONARY ARTERIAL HYPERTENSION
     Route: 048
  5. BUMETANIDE. [Concomitant]
     Active Substance: BUMETANIDE
  6. ATORVASTATIN [Concomitant]
     Active Substance: ATORVASTATIN
  7. A-HYDROCORT [Concomitant]
     Active Substance: HYDROCORTISONE SODIUM SUCCINATE
  8. LORATADINE. [Concomitant]
     Active Substance: LORATADINE
  9. MIDODRINE [Concomitant]
     Active Substance: MIDODRINE

REACTIONS (3)
  - Dyspnoea [None]
  - Product dose omission [None]
  - Hypotension [None]
